FAERS Safety Report 19894434 (Version 3)
Quarter: 2023Q1

REPORT INFORMATION
  Report Type: Report from Study
  Country: CA (occurrence: CA)
  Receive Date: 20210929
  Receipt Date: 20230118
  Transmission Date: 20230418
  Serious: Yes (Hospitalization)
  Sender: FDA-Public Use
  Company Number: CA-NOVARTISPH-NVSC2021CA216234

PATIENT
  Age: 28 Year
  Sex: Female

DRUGS (1)
  1. KESIMPTA [Suspect]
     Active Substance: OFATUMUMAB
     Indication: Relapsing-remitting multiple sclerosis
     Dosage: UNK
     Route: 058
     Dates: start: 20210918

REACTIONS (8)
  - Pain [Recovering/Resolving]
  - Tremor [Unknown]
  - Hypoaesthesia [Unknown]
  - Paraesthesia [Unknown]
  - Chest discomfort [Unknown]
  - Feeling abnormal [Unknown]
  - Chills [Unknown]
  - Asthenia [Unknown]

NARRATIVE: CASE EVENT DATE: 20210918
